FAERS Safety Report 7046315-2 (Version None)
Quarter: 2010Q4

REPORT INFORMATION
  Report Type: 
  Country: None (occurrence: None)
  Receive Date: 20101014
  Receipt Date: 20101006
  Transmission Date: 20110411
  Serious: Yes (Death)
  Sender: FDA-Public Use
  Company Number: B0679309A

PATIENT
  Age: 89 Year
  Sex: Male

DRUGS (10)
  1. AMOXICILLIN/CLAVULANATE POTASSIUM [Suspect]
     Indication: PRODUCT USED FOR UNKNOWN INDICATION
     Dosage: 1200MG THREE TIMES PER DAY
     Route: 042
     Dates: start: 20100410, end: 20100424
  2. CIPROFLOXACIN HYDROCHLORIDE [Suspect]
     Indication: PRODUCT USED FOR UNKNOWN INDICATION
     Dosage: 500MG TWICE PER DAY
     Route: 048
     Dates: start: 20100425, end: 20100504
  3. CLINDAMYCIN HCL [Suspect]
     Indication: PRODUCT USED FOR UNKNOWN INDICATION
     Dosage: 600MG THREE TIMES PER DAY
     Route: 048
     Dates: start: 20100425, end: 20100504
  4. TORASEMIDE [Concomitant]
     Dosage: 5MG PER DAY
     Route: 048
  5. DIGOXIN [Concomitant]
     Dosage: .125MG PER DAY
     Route: 048
  6. SINTROM [Concomitant]
     Dosage: 1MG PER DAY
     Route: 048
  7. ALDACTONE [Concomitant]
     Dosage: 12.5MG PER DAY
     Route: 048
  8. ANXIOLIT [Concomitant]
     Dosage: 15MG PER DAY
     Route: 048
  9. EUTHYROX [Concomitant]
     Dosage: 50MCG PER DAY
     Route: 048
     Dates: start: 20100410
  10. CONCOR [Concomitant]
     Dosage: 5MG PER DAY
     Route: 048

REACTIONS (7)
  - AORTIC STENOSIS [None]
  - CARDIAC FAILURE [None]
  - DRUG RASH WITH EOSINOPHILIA AND SYSTEMIC SYMPTOMS [None]
  - LIVER INJURY [None]
  - RASH MACULO-PAPULAR [None]
  - RENAL FAILURE ACUTE [None]
  - VENTRICULAR DYSFUNCTION [None]
